FAERS Safety Report 7329779-6 (Version None)
Quarter: 2011Q1

REPORT INFORMATION
  Report Type: 
  Country: None (occurrence: None)
  Receive Date: 20110303
  Receipt Date: 20110224
  Transmission Date: 20110831
  Serious: Yes (Other)
  Sender: FDA-Public Use
  Company Number: US-PFIZER INC-2011041779

PATIENT
  Sex: Female

DRUGS (2)
  1. PREMARIN [Suspect]
     Dosage: 1.25 MG, UNK
  2. PREMARIN [Suspect]
     Dosage: 0.6 MG, UNK

REACTIONS (2)
  - NEOPLASM MALIGNANT [None]
  - DRUG INEFFECTIVE [None]
